FAERS Safety Report 8061918-4 (Version None)
Quarter: 2012Q1

REPORT INFORMATION
  Report Type: 
  Country: None (occurrence: None)
  Receive Date: 20120117
  Receipt Date: 20120112
  Transmission Date: 20120608
  Serious: Yes (Death)
  Sender: FDA-Public Use
  Company Number: 2011001413

PATIENT
  Age: 56 Year
  Sex: Male

DRUGS (2)
  1. CHEMO TREATMENT [Concomitant]
  2. TARCEVA [Suspect]
     Indication: PANCREATIC CARCINOMA
     Dosage: 100 MG, UID/QD, ORAL
     Route: 048
     Dates: start: 20110310

REACTIONS (3)
  - CHEILITIS [None]
  - WHITE BLOOD CELL COUNT DECREASED [None]
  - NEOPLASM PROGRESSION [None]
